FAERS Safety Report 24631549 (Version 2)
Quarter: 2024Q4

REPORT INFORMATION
  Report Type: Spontaneous
  Country: SI (occurrence: SI)
  Receive Date: 20241118
  Receipt Date: 20241202
  Transmission Date: 20250114
  Serious: Yes (Hospitalization, Other)
  Sender: OTSUKA
  Company Number: SI-ZYP-2024-002

PATIENT
  Age: 18 Year
  Sex: Female

DRUGS (24)
  1. ARIPIPRAZOLE [Suspect]
     Active Substance: ARIPIPRAZOLE
     Indication: Bipolar disorder
     Dosage: UNK
     Route: 065
  2. SERTRALINE [Suspect]
     Active Substance: SERTRALINE HYDROCHLORIDE
     Indication: Bipolar disorder
     Dosage: UNK
     Route: 065
  3. OLANZAPINE [Suspect]
     Active Substance: OLANZAPINE
     Indication: Bipolar disorder
     Dosage: UNK
     Route: 065
  4. OLANZAPINE [Suspect]
     Active Substance: OLANZAPINE
     Indication: Insomnia
  5. OLANZAPINE [Suspect]
     Active Substance: OLANZAPINE
     Indication: Transient psychosis
  6. OLANZAPINE [Suspect]
     Active Substance: OLANZAPINE
     Indication: Paranoia
  7. RISPERIDONE [Suspect]
     Active Substance: RISPERIDONE
     Indication: Lactation disorder
     Dosage: UNK
     Route: 065
  8. RISPERIDONE [Suspect]
     Active Substance: RISPERIDONE
     Indication: Menstrual disorder
  9. RISPERIDONE [Suspect]
     Active Substance: RISPERIDONE
     Indication: Bipolar disorder
  10. VENLAFAXINE [Suspect]
     Active Substance: VENLAFAXINE HYDROCHLORIDE
     Indication: Product used for unknown indication
     Dosage: UNK
     Route: 065
  11. MIRTAZAPINE [Suspect]
     Active Substance: MIRTAZAPINE
     Indication: Depression
     Dosage: UNK
     Route: 065
  12. FLUOXETINE [Suspect]
     Active Substance: FLUOXETINE HYDROCHLORIDE
     Indication: Bipolar disorder
     Dosage: UNK
     Route: 065
  13. ALBUTEROL [Suspect]
     Active Substance: ALBUTEROL
     Indication: Product used for unknown indication
     Dosage: UNKNOWN
     Route: 065
  14. CLONAZEPAM [Suspect]
     Active Substance: CLONAZEPAM
     Indication: Agitation
     Dosage: UNK
     Route: 065
  15. CLONAZEPAM [Suspect]
     Active Substance: CLONAZEPAM
     Indication: Insomnia
  16. CARIPRAZINE [Suspect]
     Active Substance: CARIPRAZINE
     Indication: Product used for unknown indication
     Dosage: UNKNOWN
     Route: 065
  17. LORATADINE [Concomitant]
     Active Substance: LORATADINE
     Indication: Product used for unknown indication
     Dosage: AS NEEDED
     Route: 065
  18. LORATADINE [Concomitant]
     Active Substance: LORATADINE
     Indication: Asthma
  19. LORATADINE [Concomitant]
     Active Substance: LORATADINE
     Indication: Rhinitis
  20. ALBUTEROL [Concomitant]
     Active Substance: ALBUTEROL
     Indication: Asthma
     Dosage: AS NEEDED
     Route: 065
  21. ALBUTEROL [Concomitant]
     Active Substance: ALBUTEROL
     Indication: Rhinitis
  22. CLONAZEPAM [Concomitant]
     Active Substance: CLONAZEPAM
     Indication: Agitation
     Dosage: UNK
     Route: 065
  23. CLONAZEPAM [Concomitant]
     Active Substance: CLONAZEPAM
     Indication: Insomnia
  24. CARIPRAZINE [Concomitant]
     Active Substance: CARIPRAZINE
     Indication: Agitation
     Dosage: AS NEEDED
     Route: 065

REACTIONS (10)
  - Mental impairment [Unknown]
  - Aggression [Unknown]
  - Dyskinesia [Recovered/Resolved]
  - Oculogyric crisis [Unknown]
  - Brain fog [Unknown]
  - Lactation disorder [Recovered/Resolved]
  - Amenorrhoea [Recovered/Resolved]
  - Increased appetite [Unknown]
  - Weight increased [Unknown]
  - Drug ineffective [Recovering/Resolving]
